FAERS Safety Report 4550199-1 (Version None)
Quarter: 2005Q1

REPORT INFORMATION
  Report Type: 
  Country: None (occurrence: None)
  Receive Date: 20050112
  Receipt Date: 20050105
  Transmission Date: 20050727
  Serious: Yes (Other)
  Sender: FDA-Public Use
  Company Number: US-GLAXOSMITHKLINE-A0539402A

PATIENT
  Age: 24 Year
  Sex: Female
  Weight: 68.2 kg

DRUGS (2)
  1. TUMS REGULAR TABLETS, PEPPERMINT [Suspect]
     Route: 048
     Dates: start: 20040801
  2. THYROID TAB [Concomitant]
     Route: 048

REACTIONS (5)
  - ABORTION SPONTANEOUS [None]
  - DEPENDENCE [None]
  - DRUG EXPOSURE DURING PREGNANCY [None]
  - INTENTIONAL MISUSE [None]
  - OVERDOSE [None]
